FAERS Safety Report 9935476 (Version 1)
Quarter: 2014Q1

REPORT INFORMATION
  Report Type: Spontaneous
  Country: US (occurrence: US)
  Receive Date: 20140228
  Receipt Date: 20140228
  Transmission Date: 20141002
  Serious: No
  Sender: FDA-Public Use
  Company Number: US-PFIZER INC-2014054265

PATIENT
  Sex: 0

DRUGS (4)
  1. ADVIL ALLERGY AND CONGESTION RELIEF [Suspect]
     Indication: ALLERGY TO PLANTS
     Dosage: UNK
  2. ADVIL ALLERGY AND CONGESTION RELIEF [Suspect]
     Indication: SNEEZING
  3. ADVIL ALLERGY AND CONGESTION RELIEF [Suspect]
     Indication: RESPIRATORY TRACT CONGESTION
  4. ADVIL ALLERGY AND CONGESTION RELIEF [Suspect]
     Indication: LACRIMATION INCREASED

REACTIONS (1)
  - Drug effect incomplete [Unknown]
